FAERS Safety Report 25477879 (Version 5)
Quarter: 2025Q3

REPORT INFORMATION
  Report Type: Report from Study
  Country: US (occurrence: US)
  Receive Date: 20250625
  Receipt Date: 20250827
  Transmission Date: 20251021
  Serious: Yes (Hospitalization, Other)
  Sender: ACADIA PHARMACEUTICALS
  Company Number: US-ACADIA PHARMACEUTICALS INC.-ACA-2025-PIM-007455

PATIENT
  Age: 78 Year
  Sex: Male

DRUGS (14)
  1. NUPLAZID [Suspect]
     Active Substance: PIMAVANSERIN TARTRATE
     Indication: Parkinson^s disease
     Dosage: 34 MILLIGRAM, QD
     Route: 048
     Dates: start: 20240814
  2. NUPLAZID [Suspect]
     Active Substance: PIMAVANSERIN TARTRATE
     Indication: Parkinson^s disease psychosis
  3. TYLENOL [Concomitant]
     Active Substance: ACETAMINOPHEN
  4. METFORMIN [Concomitant]
     Active Substance: METFORMIN HYDROCHLORIDE
  5. ATORVASTATIN [Concomitant]
     Active Substance: ATORVASTATIN
  6. CHOLECALCIFEROL [Concomitant]
     Active Substance: CHOLECALCIFEROL
  7. ASPIRIN [Concomitant]
     Active Substance: ASPIRIN
  8. TIZANIDINE [Concomitant]
     Active Substance: TIZANIDINE
  9. QUETIAPINE [Concomitant]
     Active Substance: QUETIAPINE
  10. ROPINIROLE [Concomitant]
     Active Substance: ROPINIROLE
  11. PANTOPRAZOLE [Concomitant]
     Active Substance: PANTOPRAZOLE
  12. MYRBETRIQ [Concomitant]
     Active Substance: MIRABEGRON
  13. COLESTID [Concomitant]
     Active Substance: COLESTIPOL HYDROCHLORIDE
  14. RIVASTIGMINE [Concomitant]
     Active Substance: RIVASTIGMINE

REACTIONS (6)
  - Unresponsive to stimuli [Recovering/Resolving]
  - Abnormal behaviour [Recovering/Resolving]
  - Aphasia [Recovering/Resolving]
  - Delirium [Recovering/Resolving]
  - Blood pressure increased [Recovering/Resolving]
  - Gait disturbance [Unknown]

NARRATIVE: CASE EVENT DATE: 20250616
